FAERS Safety Report 7681418-0 (Version None)
Quarter: 2011Q3

REPORT INFORMATION
  Report Type: 
  Country: None (occurrence: None)
  Receive Date: 20110812
  Receipt Date: 20110728
  Transmission Date: 20111222
  Serious: Yes (Other)
  Sender: FDA-Public Use
  Company Number: DE-SPECTRUM PHARMACEUTICALS, INC.-11-Z-DE-00154

PATIENT

DRUGS (2)
  1. ZEVALIN [Suspect]
     Indication: NON-HODGKIN'S LYMPHOMA
     Dosage: 1.228 GBQ, SINGLE
     Route: 042
     Dates: start: 20110106, end: 20110106
  2. ZEVALIN [Suspect]
     Dosage: UNK

REACTIONS (10)
  - GRANULOCYTOPENIA [None]
  - PYREXIA [None]
  - ANAEMIA [None]
  - RENAL DISORDER [None]
  - PANCYTOPENIA [None]
  - THROMBOCYTOPENIA [None]
  - NEUTROPENIA [None]
  - LEUKOPENIA [None]
  - BONE MARROW FAILURE [None]
  - URINARY TRACT INFECTION [None]
